FAERS Safety Report 8800472 (Version 1)
Quarter: 2012Q4

REPORT INFORMATION
  Report Type: 
  Country: CO (occurrence: CO)
  Receive Date: 20120921
  Receipt Date: 20120921
  Transmission Date: 20130627
  Serious: Yes (Hospitalization)
  Sender: FDA-Public Use
  Company Number: CO-009507513-1209COL003916

PATIENT
  Age: 60 Year
  Sex: Male

DRUGS (4)
  1. PEG-INTRON [Suspect]
     Indication: HEPATITIS
     Dosage: 100 Microgram, UNK
     Dates: start: 20120427
  2. REBETOL [Suspect]
     Indication: HEPATITIS
     Dosage: 5 DF, UNK
  3. ENALAPRIL MALEATE [Concomitant]
     Dosage: UNK
  4. DILATREND [Concomitant]
     Dosage: UNK

REACTIONS (3)
  - Anaemia [Unknown]
  - Abdominal pain [Unknown]
  - Abdominal pain upper [Unknown]
